FAERS Safety Report 21465576 (Version 2)
Quarter: 2023Q1

REPORT INFORMATION
  Report Type: Spontaneous
  Country: JP (occurrence: JP)
  Receive Date: 20221017
  Receipt Date: 20230328
  Transmission Date: 20230417
  Serious: Yes (Death, Other)
  Sender: FDA-Public Use
  Company Number: JP-ASTELLAS-2022JP015229

PATIENT
  Age: 8 Decade
  Sex: Male

DRUGS (1)
  1. PADCEV [Suspect]
     Active Substance: ENFORTUMAB VEDOTIN-EJFV
     Indication: Transitional cell carcinoma
     Dosage: UNK UNK, UNKNOWN FREQ.
     Route: 042
     Dates: start: 202206

REACTIONS (3)
  - Death [Fatal]
  - Hepatic function abnormal [Unknown]
  - Blood glucose abnormal [Unknown]
